FAERS Safety Report 7952968-4 (Version None)
Quarter: 2011Q4

REPORT INFORMATION
  Report Type: 
  Country: None (occurrence: None)
  Receive Date: 20111201
  Receipt Date: 20111123
  Transmission Date: 20120403
  Serious: Yes (Other)
  Sender: FDA-Public Use
  Company Number: PHHY2011US54302

PATIENT
  Sex: Female

DRUGS (4)
  1. PROVIGIL [Concomitant]
     Dosage: UNK UKN, UNK
  2. LEXAPRO [Concomitant]
     Indication: DEPRESSION
     Dosage: 10 MG, QD
     Dates: start: 20000101
  3. GILENYA [Suspect]
     Indication: MULTIPLE SCLEROSIS
     Dosage: 0.5 MG, QD
     Route: 048
     Dates: start: 20110321, end: 20110701
  4. NUVIGIL [Concomitant]
     Indication: FATIGUE
     Dosage: 125 MG, QD

REACTIONS (17)
  - DISORIENTATION [None]
  - PANIC REACTION [None]
  - FATIGUE [None]
  - DECREASED APPETITE [None]
  - APATHY [None]
  - ANAEMIA [None]
  - BALANCE DISORDER [None]
  - LOSS OF CONSCIOUSNESS [None]
  - CONFUSIONAL STATE [None]
  - CONVULSION [None]
  - FEELING ABNORMAL [None]
  - DYSARTHRIA [None]
  - CONTUSION [None]
  - DEPRESSED MOOD [None]
  - DISTURBANCE IN ATTENTION [None]
  - PHOTOPSIA [None]
  - NAUSEA [None]
